FAERS Safety Report 22853115 (Version 4)
Quarter: 2023Q4

REPORT INFORMATION
  Report Type: Spontaneous
  Country: GB (occurrence: GB)
  Receive Date: 20230823
  Receipt Date: 20231005
  Transmission Date: 20240110
  Serious: Yes (Other)
  Sender: FDA-Public Use
  Company Number: GB-002147023-NVSC2023GB182484

PATIENT
  Age: 29 Year
  Sex: Female

DRUGS (3)
  1. KESIMPTA [Suspect]
     Active Substance: OFATUMUMAB
     Indication: Multiple sclerosis
     Dosage: 20 MG (ONE DOSAGE)
     Route: 058
     Dates: start: 20230811, end: 20230811
  2. KESIMPTA [Suspect]
     Active Substance: OFATUMUMAB
     Indication: Relapsing-remitting multiple sclerosis
  3. VITAMIN D NOS [Concomitant]
     Active Substance: VITAMIN D NOS
     Indication: Product used for unknown indication
     Dosage: 4000 IU, QD
     Route: 048

REACTIONS (3)
  - Seizure [Recovered/Resolved]
  - Pyrexia [Recovering/Resolving]
  - Chills [Recovered/Resolved]

NARRATIVE: CASE EVENT DATE: 20230811
